FAERS Safety Report 13071363 (Version 1)
Quarter: 2016Q4

REPORT INFORMATION
  Report Type: Spontaneous
  Country: JP (occurrence: JP)
  Receive Date: 20161229
  Receipt Date: 20161229
  Transmission Date: 20170207
  Serious: Yes (Death, Hospitalization)
  Sender: FDA-Public Use
  Company Number: JP-BAYER-2016-223025

PATIENT
  Age: 81 Year
  Sex: Male
  Weight: 56 kg

DRUGS (2)
  1. NEXAVAR [Suspect]
     Active Substance: SORAFENIB
     Indication: HEPATIC CANCER
     Dosage: 400 MG DAILY DOSE
     Route: 048
  2. LIVACT [Concomitant]
     Active Substance: AMINO ACIDS
     Dosage: DAILY DOSE 2 DF
     Route: 048

REACTIONS (4)
  - Coronary artery occlusion [None]
  - Malaise [None]
  - Mobility decreased [None]
  - Acute myocardial infarction [Fatal]

NARRATIVE: CASE EVENT DATE: 2016
